FAERS Safety Report 11685298 (Version 1)
Quarter: 2015Q4

REPORT INFORMATION
  Report Type: Spontaneous
  Country: None (occurrence: None)
  Receive Date: 20151029
  Receipt Date: 20151029
  Transmission Date: 20160304
  Serious: No
  Sender: FDA-Public Use
  Company Number: None

PATIENT

DRUGS (1)
  1. BRILINTA [Suspect]
     Active Substance: TICAGRELOR
     Indication: ARTERIAL STENT INSERTION
     Dosage: TAKEN BY MOUTH
     Route: 048
     Dates: start: 20150810, end: 20150919

REACTIONS (4)
  - Loss of consciousness [None]
  - Disorientation [None]
  - Bladder disorder [None]
  - Feeling abnormal [None]

NARRATIVE: CASE EVENT DATE: 20150926
